FAERS Safety Report 8976981 (Version 1)
Quarter: 2012Q4

REPORT INFORMATION
  Report Type: 
  Country: US (occurrence: US)
  Receive Date: 20121220
  Receipt Date: 20121220
  Transmission Date: 20130627
  Serious: No
  Sender: FDA-Public Use
  Company Number: US-GLAXOSMITHKLINE-A0969138A

PATIENT
  Age: 60 Year
  Sex: Female

DRUGS (11)
  1. SORIATANE [Suspect]
     Indication: PSORIASIS
     Dosage: 25MG Twice per day
     Route: 048
     Dates: start: 20111114, end: 20120227
  2. CYMBALTA [Concomitant]
  3. LOSARTAN [Concomitant]
  4. LORAZEPAM [Concomitant]
  5. VITAMIN D [Concomitant]
  6. BENADRYL [Concomitant]
  7. ALLEGRA [Concomitant]
  8. CALCIUM [Concomitant]
  9. TOPICORT [Concomitant]
  10. PROTOPIC [Concomitant]
  11. UNKNOWN MEDICATION [Concomitant]

REACTIONS (10)
  - Alopecia [Recovering/Resolving]
  - Alopecia [Unknown]
  - Madarosis [Unknown]
  - Skin exfoliation [Unknown]
  - Pruritus [Unknown]
  - Nasal dryness [Unknown]
  - Epistaxis [Unknown]
  - Ingrowing nail [Unknown]
  - Granuloma [Unknown]
  - Excoriation [Unknown]
